FAERS Safety Report 10625800 (Version 1)
Quarter: 2014Q4

REPORT INFORMATION
  Report Type: Spontaneous
  Country: US (occurrence: None)
  Receive Date: 20141203
  Receipt Date: 20141203
  Transmission Date: 20150529
  Serious: No
  Sender: FDA-Public Use
  Company Number: ALL1-2008-01950

PATIENT
  Age: 10 Year
  Sex: Female
  Weight: 23.6 kg

DRUGS (4)
  1. ZOLOFT /01011401/ (SERTRALINE) [Concomitant]
  2. CLONIDINE (CLONIDINE) [Concomitant]
     Active Substance: CLONIDINE
  3. MIRTAZAPINE (MIRTAZAPINE) TABLET [Concomitant]
  4. DAYTRANA [Suspect]
     Active Substance: METHYLPHENIDATE
     Indication: ATTENTION DEFICIT/HYPERACTIVITY DISORDER
     Dosage: 30 MG, 1X/DAY:QD, TRANSDERMAL
     Route: 062
     Dates: start: 20070705

REACTIONS (2)
  - Drug administered at inappropriate site [None]
  - Application site discolouration [None]

NARRATIVE: CASE EVENT DATE: 20080701
